FAERS Safety Report 7280191-8 (Version None)
Quarter: 2011Q1

REPORT INFORMATION
  Report Type: 
  Country: None (occurrence: None)
  Receive Date: 20110208
  Receipt Date: 20110126
  Transmission Date: 20110831
  Serious: Yes (Other)
  Sender: FDA-Public Use
  Company Number: TR-GENZYME-THYM-1002170

PATIENT
  Age: 13 Year
  Sex: Female

DRUGS (5)
  1. DANAZOL [Concomitant]
     Indication: APLASTIC ANAEMIA
  2. FILGRASTIM [Concomitant]
     Indication: APLASTIC ANAEMIA
  3. PREDNISOLONE [Concomitant]
     Indication: APLASTIC ANAEMIA
  4. THYMOGLOBULIN [Suspect]
     Indication: RENAL TRANSPLANT
     Route: 065
  5. CYCLOSPORINE [Concomitant]
     Indication: APLASTIC ANAEMIA

REACTIONS (1)
  - POSTERIOR REVERSIBLE ENCEPHALOPATHY SYNDROME [None]
